FAERS Safety Report 23973169 (Version 1)
Quarter: 2024Q2

REPORT INFORMATION
  Report Type: Spontaneous
  Country: US (occurrence: US)
  Receive Date: 20240613
  Receipt Date: 20240613
  Transmission Date: 20240715
  Serious: No
  Sender: FDA-Public Use
  Company Number: US-002147023-NVSC2024US124074

PATIENT

DRUGS (1)
  1. CYCLOSPORINE [Suspect]
     Active Substance: CYCLOSPORINE
     Indication: Eczema
     Dosage: UNK
     Route: 065

REACTIONS (5)
  - Chromaturia [Unknown]
  - Decreased appetite [Unknown]
  - Feeling abnormal [Unknown]
  - Dizziness [Unknown]
  - Nausea [Unknown]
